FAERS Safety Report 17238216 (Version 4)
Quarter: 2020Q3

REPORT INFORMATION
  Report Type: Report from Study
  Country: HU (occurrence: HU)
  Receive Date: 20200106
  Receipt Date: 20200729
  Transmission Date: 20201102
  Serious: Yes (Hospitalization, Other)
  Sender: FDA-Public Use
  Company Number: NVSC2019HU085552

PATIENT
  Sex: Female

DRUGS (4)
  1. COSENTYX [Suspect]
     Active Substance: SECUKINUMAB
     Indication: ANKYLOSING SPONDYLITIS
     Dosage: UNK, QMO
     Route: 058
     Dates: start: 20190805
  2. COSENTYX [Suspect]
     Active Substance: SECUKINUMAB
     Dosage: UNK UNK, QMO
     Route: 058
     Dates: start: 20200706
  3. TRAMADOLOR [Suspect]
     Active Substance: TRAMADOL
     Indication: ARTHRALGIA
     Dosage: 50 MG, OTHER (WHEN HAD PAIN)
     Route: 065
  4. CO DALNESSA [Concomitant]
     Indication: HYPERTENSION
     Dosage: UNK UNK, QD (1 TABLET OR SOMETIMES HALF TABLETA DAY)
     Route: 065

REACTIONS (24)
  - Chondropathy [Unknown]
  - Addison^s disease [Unknown]
  - Face injury [Unknown]
  - Balance disorder [Unknown]
  - Hypoacusis [Unknown]
  - Drug ineffective [Not Recovered/Not Resolved]
  - Thyroid disorder [Unknown]
  - Heart rate decreased [Unknown]
  - Fall [Unknown]
  - Gait disturbance [Not Recovered/Not Resolved]
  - Gastric disorder [Unknown]
  - Osteoporosis [Unknown]
  - Spinal deformity [Not Recovered/Not Resolved]
  - Movement disorder [Unknown]
  - Arthralgia [Not Recovered/Not Resolved]
  - Myositis ossificans [Unknown]
  - Condition aggravated [Not Recovered/Not Resolved]
  - Knee deformity [Not Recovered/Not Resolved]
  - Concomitant disease aggravated [Unknown]
  - Malaise [Unknown]
  - Ear discomfort [Unknown]
  - Hypertension [Unknown]
  - Osteoarthritis [Not Recovered/Not Resolved]
  - Dysphagia [Not Recovered/Not Resolved]

NARRATIVE: CASE EVENT DATE: 2020
